FAERS Safety Report 23275907 (Version 1)
Quarter: 2023Q4

REPORT INFORMATION
  Report Type: Spontaneous
  Country: GB (occurrence: GB)
  Receive Date: 20231208
  Receipt Date: 20231208
  Transmission Date: 20240110
  Serious: Yes (Other)
  Sender: FDA-Public Use
  Company Number: GB-002147023-NVSC2023GB256848

PATIENT
  Sex: Female

DRUGS (2)
  1. TEGRETOL [Suspect]
     Active Substance: CARBAMAZEPINE
     Indication: Product used for unknown indication
     Dosage: 1 DOSAGE FORM
     Route: 065
  2. TEGRETOL [Suspect]
     Active Substance: CARBAMAZEPINE
     Dosage: 600 MG (3X100MG IN THE MORNING, 3X100MG IN THE AFTERNOON/EVENING)
     Route: 065

REACTIONS (5)
  - Arrhythmia [Unknown]
  - Brugada syndrome [Unknown]
  - Seizure [Unknown]
  - Pyrexia [Unknown]
  - Skin disorder [Unknown]
